FAERS Safety Report 6165359-6 (Version None)
Quarter: 2009Q2

REPORT INFORMATION
  Report Type: 
  Country: None (occurrence: None)
  Receive Date: 20090423
  Receipt Date: 20090413
  Transmission Date: 20091009
  Serious: Yes (Other)
  Sender: FDA-Public Use
  Company Number: GB-AVENTIS-200913954GDDC

PATIENT
  Age: 67 Year
  Sex: Female

DRUGS (2)
  1. GLIBENCLAMIDE [Suspect]
  2. INDAPAMIDE [Suspect]

REACTIONS (2)
  - CARDIAC ARREST [None]
  - TORSADE DE POINTES [None]
